FAERS Safety Report 7864825-2 (Version None)
Quarter: 2011Q4

REPORT INFORMATION
  Report Type: 
  Country: None (occurrence: None)
  Receive Date: 20111028
  Receipt Date: 20101122
  Transmission Date: 20120403
  Serious: No
  Sender: FDA-Public Use
  Company Number: US-GLAXOSMITHKLINE-A0876761A

PATIENT
  Age: 42 Year
  Sex: Male

DRUGS (10)
  1. BUSPAR [Concomitant]
     Dosage: 10MG SIX TIMES PER DAY
  2. AMLODIPINE BESYLATE [Concomitant]
  3. ADVAIR DISKUS 100/50 [Suspect]
     Indication: CHRONIC OBSTRUCTIVE PULMONARY DISEASE
     Route: 055
     Dates: start: 20100101
  4. GABAPENTIN [Concomitant]
     Dosage: 600MG TWICE PER DAY
  5. FAMOTIDINE 20MG TWICE DAILY [Concomitant]
  6. WELLBUTRIN [Concomitant]
  7. PROVENTIL [Concomitant]
  8. ABILIFY [Concomitant]
  9. LISINOPRIL [Concomitant]
  10. OMEPRAZOLE [Concomitant]

REACTIONS (2)
  - COUGH [None]
  - PRODUCT QUALITY ISSUE [None]
